FAERS Safety Report 24253251 (Version 1)
Quarter: 2024Q3

REPORT INFORMATION
  Report Type: Spontaneous
  Country: US (occurrence: US)
  Receive Date: 20240827
  Receipt Date: 20240827
  Transmission Date: 20241017
  Serious: Yes (Other)
  Sender: MYLAN
  Company Number: US-MYLANLABS-2024M1078278

PATIENT
  Age: 50 Year
  Sex: Female

DRUGS (2)
  1. ETHINYL ESTRADIOL\NORGESTIMATE [Suspect]
     Active Substance: ETHINYL ESTRADIOL\NORGESTIMATE
     Indication: Oral contraception
     Dosage: RECEIVED ETHINYLESTRADIOL/NORGESTIMATE 0.18/0.215/0.25MG-35 ?G
     Route: 048
  2. DILTIAZEM [Concomitant]
     Active Substance: DILTIAZEM
     Indication: Hypertension
     Dosage: 120 MILLIGRAM
     Route: 065

REACTIONS (2)
  - Hyperadrenocorticism [Recovered/Resolved]
  - Anxiety [Recovered/Resolved]
